FAERS Safety Report 9670147 (Version 1)
Quarter: 2013Q4

REPORT INFORMATION
  Report Type: Spontaneous
  Country: US (occurrence: None)
  Receive Date: 20131029
  Receipt Date: 20131029
  Transmission Date: 20140711
  Serious: Yes (Hospitalization, Other)
  Sender: FDA-Public Use
  Company Number: 2013038530

PATIENT
  Sex: Female
  Weight: 61.24 kg

DRUGS (17)
  1. HIZENTRA [Suspect]
     Indication: IMMUNODEFICIENCY COMMON VARIABLE
     Dosage: (8 G 1X/WEEK, MULTIPLE SITES OVER 1-2 HOURS SUBCUTANEOUS)
     Route: 058
  2. ACETAMINOPHEN (PARACETAMOL) [Concomitant]
  3. DIPHENHYDRAMINE (DIPHENHYDRAMINE) [Concomitant]
  4. LIDOCAINE/PRILOCAINE (EMLA /00675501/) [Concomitant]
  5. EPI-PEN (EPINEPHRINE HYDROCHLORIDE) [Concomitant]
  6. LMX (LIDOCAINE) [Concomitant]
  7. ZOCOR (SIMVASTATIN) [Concomitant]
  8. NIASPAN ER (NICOTINIC ACID) [Concomitant]
  9. ATENOLOL (ATENOLOL) [Concomitant]
  10. AZITHROMYCIN (AZITHROMYCIN) [Concomitant]
  11. DOXEPIN (DOXEPIN) (DOXEPIN) [Concomitant]
  12. ASPIRIN (ACETYLSALICYLIC ACID) [Concomitant]
  13. ALPRAZOLAM (ALPRAZOLAM) [Concomitant]
  14. VITAMIN C [Concomitant]
  15. FISH OIL (FISH OIL) [Concomitant]
  16. VITAMIN D (ERGOCALCIFEROL) [Concomitant]
  17. COENZYME Q10 (UBIDECARENONE) [Concomitant]

REACTIONS (1)
  - Intracranial aneurysm [None]
